APPROVED DRUG PRODUCT: DEXAMETHASONE
Active Ingredient: DEXAMETHASONE
Strength: 1.5MG
Dosage Form/Route: TABLET;ORAL
Application: A201270 | Product #001 | TE Code: AB
Applicant: PHARMOBEDIENT CONSULTING LLC
Approved: Jul 17, 2017 | RLD: No | RS: No | Type: RX